FAERS Safety Report 7636357-8 (Version None)
Quarter: 2011Q3

REPORT INFORMATION
  Report Type: 
  Country: None (occurrence: None)
  Receive Date: 20110726
  Receipt Date: 20110715
  Transmission Date: 20111222
  Serious: No
  Sender: FDA-Public Use
  Company Number: JP-GLAXOSMITHKLINE-B0673989A

PATIENT
  Sex: Female
  Weight: 57 kg

DRUGS (6)
  1. NEO-MERCAZOLE TAB [Concomitant]
     Indication: HYPERTHYROIDISM
     Route: 048
  2. ZOMETA [Concomitant]
     Indication: BREAST CANCER
     Dosage: 4MG PER DAY
     Route: 042
  3. TYKERB [Suspect]
     Dosage: 1000MG PER DAY
     Route: 048
     Dates: start: 20090826, end: 20100728
  4. TYKERB [Suspect]
     Indication: BREAST CANCER
     Dosage: 1250MG PER DAY
     Route: 048
     Dates: start: 20090729, end: 20090820
  5. TYKERB [Suspect]
     Dosage: 1250MG PER DAY
     Route: 048
     Dates: start: 20090823, end: 20090825
  6. XELODA [Suspect]
     Dosage: 2400MG PER DAY
     Route: 048
     Dates: start: 20090729, end: 20100728

REACTIONS (1)
  - DIARRHOEA [None]
